FAERS Safety Report 9468447 (Version 2)
Quarter: 2014Q3

REPORT INFORMATION
  Report Type: Spontaneous
  Country: US (occurrence: US)
  Receive Date: 20130821
  Receipt Date: 20140819
  Transmission Date: 20150326
  Serious: Yes (Hospitalization)
  Sender: FDA-Public Use
  Company Number: US-009507513-1308USA007509

PATIENT
  Sex: Female

DRUGS (1)
  1. NUVARING [Suspect]
     Active Substance: ETHINYL ESTRADIOL\ETONOGESTREL
     Indication: CONTRACEPTION
     Dosage: UNK
     Route: 067
     Dates: start: 201205, end: 201209

REACTIONS (12)
  - Drug hypersensitivity [Unknown]
  - Leukopenia [Unknown]
  - Nausea [Unknown]
  - Systemic inflammatory response syndrome [Not Recovered/Not Resolved]
  - Vomiting [Unknown]
  - Abdominal pain [Unknown]
  - Headache [Unknown]
  - Pelvic inflammatory disease [Unknown]
  - Sinus tachycardia [Unknown]
  - Ovarian vein thrombosis [Unknown]
  - Oropharyngeal pain [Unknown]
  - Rash [Unknown]

NARRATIVE: CASE EVENT DATE: 201209
